FAERS Safety Report 6825078-7 (Version None)
Quarter: 2010Q3

REPORT INFORMATION
  Report Type: 
  Country: None (occurrence: None)
  Receive Date: 20100708
  Receipt Date: 20070102
  Transmission Date: 20110219
  Serious: No
  Sender: FDA-Public Use
  Company Number: US-PFIZER INC-2007001780

PATIENT
  Age: 57 Year
  Sex: Female
  Weight: 52.16 kg

DRUGS (4)
  1. CHANTIX [Suspect]
     Indication: SMOKING CESSATION THERAPY
     Route: 048
     Dates: start: 20061101
  2. OXYCONTIN [Concomitant]
     Indication: PAIN
     Route: 048
  3. ALPRAZOLAM [Concomitant]
     Indication: PAIN
     Route: 048
  4. CYMBALTA [Concomitant]
     Indication: PAIN
     Route: 048

REACTIONS (1)
  - NAUSEA [None]
